FAERS Safety Report 20129703 (Version 1)
Quarter: 2021Q4

REPORT INFORMATION
  Report Type: Spontaneous
  Country: MY (occurrence: MY)
  Receive Date: 20211130
  Receipt Date: 20211130
  Transmission Date: 20220303
  Serious: Yes (Hospitalization, Other)
  Sender: FDA-Public Use
  Company Number: MY-GLAXOSMITHKLINE-MY2021GSK242223

PATIENT
  Age: 80 Year
  Sex: Female

DRUGS (6)
  1. LITHIUM [Suspect]
     Active Substance: LITHIUM
     Indication: Bipolar disorder
     Dosage: UNK
  2. LAMOTRIGINE [Suspect]
     Active Substance: LAMOTRIGINE
     Indication: Bipolar disorder
     Dosage: UNK
  3. LAMOTRIGINE [Suspect]
     Active Substance: LAMOTRIGINE
     Dosage: 150 MG, 1D
  4. CLOZAPINE [Suspect]
     Active Substance: CLOZAPINE
     Indication: Bipolar disorder
     Dosage: 6.25 MG,NOCTE
  5. NORTRIPTYLINE [Concomitant]
     Active Substance: NORTRIPTYLINE
     Indication: Electroconvulsive therapy
     Dosage: UNK
  6. ASENAPINE [Concomitant]
     Active Substance: ASENAPINE
     Indication: Electroconvulsive therapy
     Dosage: UNK

REACTIONS (22)
  - Nephrogenic diabetes insipidus [Recovered/Resolved]
  - Vomiting [Recovered/Resolved]
  - Dehydration [Recovered/Resolved]
  - Hyponatraemia [Recovered/Resolved]
  - Hypernatraemia [Recovered/Resolved]
  - Parkinsonism [Recovered/Resolved]
  - Aphasia [Recovered/Resolved]
  - Osmotic demyelination syndrome [Recovered/Resolved]
  - Muscle rigidity [Recovered/Resolved]
  - Tremor [Recovered/Resolved]
  - Muscle spasms [Recovered/Resolved]
  - Quadriparesis [Recovered/Resolved]
  - Extensor plantar response [Recovered/Resolved]
  - Dysphonia [Recovered/Resolved]
  - Consciousness fluctuating [Recovered/Resolved]
  - Apraxia [Recovered/Resolved]
  - Loss of consciousness [Recovered/Resolved]
  - Catatonia [Recovered/Resolved]
  - Hyperosmolar state [Recovered/Resolved]
  - Acute kidney injury [Recovered/Resolved]
  - Hypoalbuminaemia [Recovered/Resolved]
  - Somnolence [Recovering/Resolving]
